FAERS Safety Report 14647048 (Version 1)
Quarter: 2018Q1

REPORT INFORMATION
  Report Type: Spontaneous
  Country: US (occurrence: US)
  Receive Date: 20180315
  Receipt Date: 20180315
  Transmission Date: 20180509
  Serious: Yes (Other)
  Sender: FDA-Public Use
  Company Number: None

PATIENT
  Age: 27 Year
  Sex: Female
  Weight: 49.5 kg

DRUGS (8)
  1. DESOXIMETASONE. [Concomitant]
     Active Substance: DESOXIMETASONE
  2. ADDERALL [Concomitant]
     Active Substance: AMPHETAMINE ASPARTATE\AMPHETAMINE SULFATE\DEXTROAMPHETAMINE SACCHARATE\DEXTROAMPHETAMINE SULFATE
  3. EPTEX CONTROLLED RELEASE ACNE WASH BENZOYL PEROXIDE [Concomitant]
  4. MYORISAN [Suspect]
     Active Substance: ISOTRETINOIN
     Indication: ACNE CYSTIC
     Dosage: ?          QUANTITY:1 CAPSULE(S);?
     Route: 048
     Dates: start: 20180219, end: 20180310
  5. EPTEX CONTROLLED RELEASE ACNE RELIEF LOTION SALICYLIC ACID [Concomitant]
  6. NATURE MADE HAIR, SKIN, NAILS GUMMIES (BIOTIN AND VITAMIN C SUPPLEMENT) [Concomitant]
  7. MELATONIN (QUICK DISSOLVE) [Concomitant]
  8. SPIRONOLACTONE. [Concomitant]
     Active Substance: SPIRONOLACTONE

REACTIONS (1)
  - Eye allergy [None]

NARRATIVE: CASE EVENT DATE: 20180302
